FAERS Safety Report 6129509-X (Version None)
Quarter: 2009Q1

REPORT INFORMATION
  Report Type: 
  Country: None (occurrence: None)
  Receive Date: 20090324
  Receipt Date: 20090313
  Transmission Date: 20090719
  Serious: Yes (Other)
  Sender: FDA-Public Use
  Company Number: HU-ROCHE-621744

PATIENT
  Age: 67 Year
  Sex: Female

DRUGS (7)
  1. BONIVA [Suspect]
     Indication: OSTEOPOROSIS
     Route: 042
     Dates: start: 20090311
  2. CONTROLOC [Concomitant]
  3. ATORIS [Concomitant]
  4. FURON [Concomitant]
  5. KALIUM-R [Concomitant]
  6. ALPHA D3 [Concomitant]
  7. RANTUDIL [Concomitant]

REACTIONS (1)
  - PHLEBITIS [None]
